FAERS Safety Report 14082195 (Version 1)
Quarter: 2017Q4

REPORT INFORMATION
  Report Type: Spontaneous
  Country: CN (occurrence: CN)
  Receive Date: 20171013
  Receipt Date: 20171013
  Transmission Date: 20180321
  Serious: Yes (Other)
  Sender: FDA-Public Use
  Company Number: CN-GLAXOSMITHKLINE-CN2017GSK156761

PATIENT
  Sex: Male

DRUGS (1)
  1. LAMIVUDINE. [Suspect]
     Active Substance: LAMIVUDINE
     Indication: VIRAL INFECTION
     Dosage: 100 MG, QD
     Route: 048
     Dates: start: 20170418, end: 20170510

REACTIONS (3)
  - Blood creatine phosphokinase increased [Recovering/Resolving]
  - Abdominal pain lower [Recovering/Resolving]
  - Rhabdomyolysis [Recovering/Resolving]
